FAERS Safety Report 16350999 (Version 2)
Quarter: 2019Q2

REPORT INFORMATION
  Report Type: Spontaneous
  Country: US (occurrence: US)
  Receive Date: 20190524
  Receipt Date: 20190531
  Transmission Date: 20190711
  Serious: Yes (Life-Threatening, Hospitalization, Other)
  Sender: FDA-Public Use
  Company Number: US-ALKEM LABORATORIES LIMITED-US-ALKEM-2019-04461

PATIENT
  Age: 17 Year
  Sex: Female

DRUGS (1)
  1. BENZONATATE. [Suspect]
     Active Substance: BENZONATATE
     Indication: SUICIDE ATTEMPT
     Dosage: 200 MILLIGRAM, 10 CAPSULES
     Route: 048

REACTIONS (6)
  - Ventricular fibrillation [Recovering/Resolving]
  - Cardiac arrest [Recovering/Resolving]
  - Seizure [Recovering/Resolving]
  - Blindness [Not Recovered/Not Resolved]
  - Confabulation [Not Recovered/Not Resolved]
  - Overdose [Unknown]
